FAERS Safety Report 12139058 (Version 2)
Quarter: 2016Q2

REPORT INFORMATION
  Report Type: Spontaneous
  Country: IE (occurrence: IE)
  Receive Date: 20160302
  Receipt Date: 20160426
  Transmission Date: 20160815
  Serious: Yes (Hospitalization, Other)
  Sender: FDA-Public Use
  Company Number: IE-ELI_LILLY_AND_COMPANY-IE201602007755

PATIENT
  Age: 38 Year
  Sex: Female

DRUGS (7)
  1. DULOXETINE HYDROCHLORIDE. [Interacting]
     Active Substance: DULOXETINE HYDROCHLORIDE
     Indication: PRODUCT USED FOR UNKNOWN INDICATION
     Dosage: UNK, UNKNOWN
     Route: 065
  2. CLOZARIL [Interacting]
     Active Substance: CLOZAPINE
     Dosage: UNK, UNKNOWN
     Route: 048
     Dates: start: 20160127
  3. CYMBALTA [Suspect]
     Active Substance: DULOXETINE HYDROCHLORIDE
     Indication: PRODUCT USED FOR UNKNOWN INDICATION
     Dosage: UNK, UNKNOWN
     Route: 065
     Dates: start: 20160127
  4. CLOZARIL [Interacting]
     Active Substance: CLOZAPINE
     Dosage: 300 MG, QD (100MG IN THE MORNING AND 200MG AT NIGHT)
     Route: 048
  5. ZISPIN [Interacting]
     Active Substance: MIRTAZAPINE
     Indication: PRODUCT USED FOR UNKNOWN INDICATION
     Dosage: UNK UNK, UNKNOWN
     Route: 065
     Dates: start: 20160127
  6. CLOZARIL [Interacting]
     Active Substance: CLOZAPINE
     Indication: SCHIZOPHRENIA
     Dosage: UNK UNK, UNKNOWN
     Route: 048
     Dates: start: 20110620
  7. CLOZARIL [Interacting]
     Active Substance: CLOZAPINE
     Dosage: UNK UNK, UNKNOWN
     Route: 048
     Dates: start: 20160131

REACTIONS (15)
  - Somnolence [Unknown]
  - Confusional state [Unknown]
  - Influenza like illness [Unknown]
  - Mean cell volume decreased [Unknown]
  - Dizziness [Unknown]
  - Anxiety [Unknown]
  - Haemoglobin decreased [Unknown]
  - Infection [Unknown]
  - Tooth abscess [Unknown]
  - Disorientation [Unknown]
  - Drug interaction [Unknown]
  - Intentional overdose [Unknown]
  - Malaise [Unknown]
  - Overdose [Unknown]
  - Seizure [Unknown]

NARRATIVE: CASE EVENT DATE: 20160127
